FAERS Safety Report 4746066-0 (Version None)
Quarter: 2005Q3

REPORT INFORMATION
  Report Type: 
  Country: None (occurrence: None)
  Receive Date: 20050816
  Receipt Date: 20050602
  Transmission Date: 20060218
  Serious: Yes (Life-Threatening)
  Sender: FDA-Public Use
  Company Number: JP-ROCHE-406468

PATIENT
  Age: 72 Year
  Sex: Male
  Weight: 60 kg

DRUGS (9)
  1. PANALDINE [Suspect]
     Indication: ACUTE MYOCARDIAL INFARCTION
     Route: 048
     Dates: start: 20041118, end: 20050114
  2. PANALDINE [Suspect]
     Route: 048
     Dates: start: 20050121, end: 20050205
  3. LASIX [Concomitant]
     Route: 048
     Dates: start: 20041121
  4. ASPIRIN [Concomitant]
     Route: 048
     Dates: start: 20041113
  5. MAINTATE [Concomitant]
     Route: 048
     Dates: start: 20041219, end: 20050114
  6. LIPITOR [Concomitant]
     Route: 048
     Dates: start: 20041121
  7. LAFUTIDINE [Concomitant]
     Dosage: REPORTED AS PROTECADIN.
     Route: 048
     Dates: start: 20041113
  8. CONTOMIN [Concomitant]
     Route: 048
     Dates: start: 20041117
  9. DEPAS [Concomitant]
     Route: 048
     Dates: start: 20041117

REACTIONS (16)
  - ALANINE AMINOTRANSFERASE INCREASED [None]
  - ASPARTATE AMINOTRANSFERASE INCREASED [None]
  - BLOOD CREATININE INCREASED [None]
  - BLOOD UREA INCREASED [None]
  - CARDIAC FAILURE [None]
  - EXTREMITY NECROSIS [None]
  - FAT EMBOLISM [None]
  - HAEMODIALYSIS [None]
  - HEPATIC FUNCTION ABNORMAL [None]
  - MENTAL DISORDER [None]
  - PULMONARY CONGESTION [None]
  - PYREXIA [None]
  - RENAL DISORDER [None]
  - SHOCK [None]
  - STAPHYLOCOCCAL SEPSIS [None]
  - THROMBOTIC THROMBOCYTOPENIC PURPURA [None]
